FAERS Safety Report 6275877-8 (Version None)
Quarter: 2009Q3

REPORT INFORMATION
  Report Type: 
  Country: None (occurrence: None)
  Receive Date: 20090721
  Receipt Date: 20090714
  Transmission Date: 20100115
  Serious: Yes (Hospitalization)
  Sender: FDA-Public Use
  Company Number: JP-MERCK-0906USA03774

PATIENT
  Age: 47 Year
  Sex: Female

DRUGS (5)
  1. SINGULAIR [Suspect]
     Indication: ASTHMA
     Route: 048
     Dates: start: 20090101, end: 20090611
  2. ALESION [Suspect]
     Route: 048
     Dates: start: 20090101, end: 20090611
  3. MAGNESIUM OXIDE [Concomitant]
     Route: 048
  4. ACINON [Concomitant]
     Route: 048
  5. LOXONIN [Concomitant]
     Route: 048
     Dates: start: 20090606, end: 20090613

REACTIONS (1)
  - VASCULITIS [None]
